FAERS Safety Report 17858082 (Version 1)
Quarter: 2020Q2

REPORT INFORMATION
  Report Type: Spontaneous
  Country: FR (occurrence: FR)
  Receive Date: 20200604
  Receipt Date: 20200604
  Transmission Date: 20200714
  Serious: Yes (Other)
  Sender: FDA-Public Use
  Company Number: FR-GLAXOSMITHKLINE-FR2020092313

PATIENT
  Age: 73 Year
  Sex: Male

DRUGS (2)
  1. VENTOLINE [Suspect]
     Active Substance: ALBUTEROL
     Indication: CORONAVIRUS INFECTION
     Dosage: UNK
     Route: 055
     Dates: start: 20200419
  2. LOVENOX [Suspect]
     Active Substance: ENOXAPARIN SODIUM
     Indication: CORONAVIRUS INFECTION
     Dosage: UNK
     Route: 058
     Dates: start: 20200414, end: 20200504

REACTIONS (1)
  - Eosinophilia [Not Recovered/Not Resolved]

NARRATIVE: CASE EVENT DATE: 20200420
